FAERS Safety Report 9356355 (Version 2)
Quarter: 2013Q4

REPORT INFORMATION
  Report Type: Spontaneous
  Country: US (occurrence: US)
  Receive Date: 20130619
  Receipt Date: 20131223
  Transmission Date: 20140711
  Serious: Yes (Death, Hospitalization)
  Sender: FDA-Public Use
  Company Number: US-B.I. PHARMACEUTICALS,INC./RIDGEFIELD-2013-BI-16850BP

PATIENT
  Sex: Female
  Weight: 45.36 kg

DRUGS (11)
  1. PRADAXA [Suspect]
     Indication: ANTICOAGULANT THERAPY
     Dosage: 300 MG
     Route: 048
     Dates: start: 20110407, end: 20110627
  2. VITAMIN C [Concomitant]
     Dosage: 500 MG
     Route: 048
  3. ZITHROMAX [Concomitant]
     Dosage: 500 MG
     Route: 048
  4. BENAZEPRIL [Concomitant]
     Dosage: 40 MG
     Route: 048
  5. DIGOXIN [Concomitant]
     Dosage: 53.5714 MCG
     Route: 048
  6. COLACE [Concomitant]
     Dosage: 200 MG
     Route: 048
  7. LACTULOSE [Concomitant]
     Dosage: 15 ML
     Route: 048
  8. PEPCID [Concomitant]
     Dosage: 40 MG
     Route: 048
  9. METOPROLOL [Concomitant]
     Dosage: 25 MG
     Route: 048
  10. ASPIRIN [Concomitant]
     Dosage: 81 MG
     Route: 048
     Dates: end: 20110623
  11. MULTIVITAMIN [Concomitant]
     Route: 048
     Dates: end: 20110623

REACTIONS (2)
  - Lower gastrointestinal haemorrhage [Fatal]
  - Haemorrhagic anaemia [Unknown]
